FAERS Safety Report 21915772 (Version 9)
Quarter: 2024Q1

REPORT INFORMATION
  Report Type: Spontaneous
  Country: US (occurrence: US)
  Receive Date: 20230126
  Receipt Date: 20240105
  Transmission Date: 20240410
  Serious: No
  Sender: FDA-Public Use
  Company Number: US-PFIZER INC-PV202300015919

PATIENT
  Age: 74 Year
  Sex: Female

DRUGS (2)
  1. BOSULIF [Suspect]
     Active Substance: BOSUTINIB MONOHYDRATE
     Indication: Chronic myeloid leukaemia
     Dosage: TAKE 2 TABLETS (200 MG TOTAL) DAILY/ DO NOT BREAK TABLET. TAKE WITH FOOD
     Route: 048
  2. BOSULIF [Suspect]
     Active Substance: BOSUTINIB MONOHYDRATE
     Dosage: 200 MG, DAILY ((BOSULIF 100 MG, 30-DAY SUPPLY TAKE 2 TABLETS (200 MG TOTAL) BY MOUTH DAILY)
     Route: 048
     Dates: start: 20220817

REACTIONS (2)
  - Neuropsychological symptoms [Not Recovered/Not Resolved]
  - Nausea [Not Recovered/Not Resolved]

NARRATIVE: CASE EVENT DATE: 20170113
